FAERS Safety Report 16025539 (Version 2)
Quarter: 2019Q2

REPORT INFORMATION
  Report Type: Report from Study
  Country: None (occurrence: US)
  Receive Date: 20190302
  Receipt Date: 20190411
  Transmission Date: 20190711
  Serious: Yes (Hospitalization, Other)
  Sender: FDA-Public Use
  Company Number: US-ABBVIE-19K-163-2684284-00

PATIENT
  Age: 87 Year
  Sex: Female
  Weight: 62.65 kg

DRUGS (9)
  1. VENCLEXTA [Suspect]
     Active Substance: VENETOCLAX
     Route: 048
     Dates: start: 20190203, end: 20190319
  2. VENCLEXTA [Suspect]
     Active Substance: VENETOCLAX
     Route: 048
     Dates: start: 20190401
  3. CALCIUM [Concomitant]
     Active Substance: CALCIUM
     Indication: PRODUCT USED FOR UNKNOWN INDICATION
     Dosage: DAILY
  4. VENCLEXTA [Suspect]
     Active Substance: VENETOCLAX
     Indication: ACUTE MYELOID LEUKAEMIA
     Route: 048
     Dates: start: 20190201, end: 20190201
  5. VENCLEXTA [Suspect]
     Active Substance: VENETOCLAX
     Route: 048
  6. DACOGEN [Concomitant]
     Active Substance: DECITABINE
     Indication: ACUTE MYELOID LEUKAEMIA
     Route: 042
  7. VENCLEXTA [Suspect]
     Active Substance: VENETOCLAX
     Indication: BLOOD PRESSURE MEASUREMENT
     Route: 048
     Dates: start: 20190131, end: 20190131
  8. VENCLEXTA [Suspect]
     Active Substance: VENETOCLAX
     Route: 048
     Dates: start: 20190202, end: 20190202
  9. LISINOPRIL. [Concomitant]
     Active Substance: LISINOPRIL
     Indication: BLOOD PRESSURE MEASUREMENT
     Route: 048

REACTIONS (2)
  - Urinary tract infection [Recovered/Resolved]
  - Haemoglobin decreased [Recovering/Resolving]

NARRATIVE: CASE EVENT DATE: 20190216
